FAERS Safety Report 19513288 (Version 1)
Quarter: 2021Q3

REPORT INFORMATION
  Report Type: Other
  Country: US (occurrence: US)
  Receive Date: 20210709
  Receipt Date: 20210709
  Transmission Date: 20211014
  Serious: No
  Sender: FDA-Public Use
  Company Number: US-ROCHE-2866737

PATIENT
  Age: 42 Year
  Sex: Female
  Weight: 113.05 kg

DRUGS (1)
  1. OCREVUS [Suspect]
     Active Substance: OCRELIZUMAB
     Indication: RELAPSING-REMITTING MULTIPLE SCLEROSIS
     Dosage: ONGOING: NO ,DATE OF TREATMENT 2019?04?15; 2019?10?30; 2020?04?29; 2020?10?28
     Route: 042
     Dates: start: 2019, end: 202011

REACTIONS (2)
  - Magnetic resonance imaging abnormal [Unknown]
  - COVID-19 [Not Recovered/Not Resolved]

NARRATIVE: CASE EVENT DATE: 202011
